FAERS Safety Report 17821515 (Version 5)
Quarter: 2020Q3

REPORT INFORMATION
  Report Type: Spontaneous
  Country: US (occurrence: US)
  Receive Date: 20200525
  Receipt Date: 20200921
  Transmission Date: 20201102
  Serious: No
  Sender: FDA-Public Use
  Company Number: US-009507513-2005USA006812

PATIENT
  Sex: Female
  Weight: 73.48 kg

DRUGS (2)
  1. NUVARING [Suspect]
     Active Substance: ETHINYL ESTRADIOL\ETONOGESTREL
     Indication: CONTRACEPTION
     Dosage: UNK
     Dates: end: 20200519
  2. IMPLANON [Suspect]
     Active Substance: ETONOGESTREL
     Dosage: STRENGTH: 68 (UNITS UNSPECIFIED), 1 ROD PER 3 YEARS
     Route: 059
     Dates: start: 2013

REACTIONS (4)
  - Incorrect product administration duration [Unknown]
  - Metrorrhagia [Unknown]
  - Overdose [Unknown]
  - Complication associated with device [Not Recovered/Not Resolved]

NARRATIVE: CASE EVENT DATE: 2013
